FAERS Safety Report 4450121-2 (Version None)
Quarter: 2004Q3

REPORT INFORMATION
  Report Type: 
  Country: None (occurrence: None)
  Receive Date: 20040909
  Receipt Date: 20040827
  Transmission Date: 20050211
  Serious: Yes (Death, Hospitalization)
  Sender: FDA-Public Use
  Company Number: SAGL-ZLB/04/17/GFR

PATIENT
  Age: 41 Year
  Sex: Female

DRUGS (16)
  1. SANDOGLOBULIN [Suspect]
     Indication: BLOOD IMMUNOGLOBULIN G DECREASED
     Dosage: 30 G, MONTHLY, I.V.
     Route: 042
     Dates: end: 20040405
  2. SANDOGLOBULIN [Suspect]
  3. SANDOGLOBULIN [Suspect]
  4. SANDOGLOBULIN [Suspect]
  5. SANDOGLOBULIN [Suspect]
  6. SANDOGLOBULIN [Suspect]
  7. SANDOGLOBULIN [Suspect]
  8. SANDOGLOBULIN [Suspect]
  9. SANDOGLOBULIN [Suspect]
  10. SANDOGLOBULIN [Suspect]
  11. SANDOGLOBULIN [Suspect]
  12. SANDOGLOBULIN [Suspect]
  13. SANDOGLOBULIN [Suspect]
  14. SANDOGLOBULIN [Suspect]
  15. SANDOGLOBULIN [Suspect]
  16. SANDOGLOBULIN [Suspect]

REACTIONS (6)
  - ANTI-HBC ANTIBODY POSITIVE [None]
  - ANTI-HBS ANTIBODY POSITIVE [None]
  - CARDIOPULMONARY FAILURE [None]
  - HEPATITIS C [None]
  - JAUNDICE [None]
  - PULMONARY HAEMORRHAGE [None]
